FAERS Safety Report 7200009-9 (Version None)
Quarter: 2010Q4

REPORT INFORMATION
  Report Type: 
  Country: None (occurrence: None)
  Receive Date: 20101228
  Receipt Date: 20101214
  Transmission Date: 20110411
  Serious: Yes (Other)
  Sender: FDA-Public Use
  Company Number: GXKR2010JP12490

PATIENT
  Age: 50 Year
  Sex: Male

DRUGS (8)
  1. FLUOROURACIL [Suspect]
     Indication: COLON CANCER
     Dosage: 400 MG/M2, UNK
     Route: 042
     Dates: start: 20090401, end: 20090401
  2. FLUOROURACIL [Suspect]
     Dosage: 2400 MG/M2, CONT
     Dates: start: 20090401, end: 20090401
  3. FLUOROURACIL [Suspect]
     Dosage: 320 MG/M2, (20% DOSE REDUCTION)
     Route: 042
     Dates: start: 20090401
  4. FLUOROURACIL [Suspect]
     Dosage: 1920 MG/M2, CONT (20% DOSE REDUCTION)
     Dates: start: 20090401
  5. OXALIPLATIN [Concomitant]
     Indication: COLON CANCER
     Dosage: 85 MG/M2, UNK
     Route: 042
     Dates: start: 20090401, end: 20090401
  6. OXALIPLATIN [Concomitant]
     Dosage: 100 MG/M2, UNK
     Route: 042
     Dates: start: 20090401
  7. FOLINIC ACID [Concomitant]
     Indication: COLON CANCER
     Dosage: 200 MG/M2, UNK
     Route: 042
     Dates: start: 20090401, end: 20090401
  8. FOLINIC ACID [Concomitant]
     Dosage: 80 MG/M2, UNK
     Route: 042
     Dates: start: 20090401

REACTIONS (5)
  - ALTERED STATE OF CONSCIOUSNESS [None]
  - HYPERAMMONAEMIA [None]
  - HYPERAMMONAEMIC ENCEPHALOPATHY [None]
  - NAUSEA [None]
  - VOMITING [None]
